FAERS Safety Report 8484176-5 (Version None)
Quarter: 2012Q2

REPORT INFORMATION
  Report Type: 
  Country: None (occurrence: None)
  Receive Date: 20120402
  Receipt Date: 20111111
  Transmission Date: 20120825
  Serious: Yes (Hospitalization, Other)
  Sender: FDA-Public Use
  Company Number: A-US2011-55853

PATIENT
  Age: 46 Year
  Sex: Female

DRUGS (1)
  1. TRACLEER [Suspect]
     Dosage: ORAL
     Route: 048
     Dates: start: 20050707

REACTIONS (2)
  - PNEUMONIA [None]
  - PULMONARY ARTERIAL HYPERTENSION [None]
